FAERS Safety Report 22379418 (Version 1)
Quarter: 2023Q2

REPORT INFORMATION
  Report Type: Spontaneous
  Country: ZA (occurrence: ZA)
  Receive Date: 20230529
  Receipt Date: 20230529
  Transmission Date: 20230721
  Serious: Yes (Other)
  Sender: FDA-Public Use
  Company Number: ZA-PFIZER INC-PV202300091913

PATIENT
  Age: 43 Year
  Sex: Female
  Weight: 89.5 kg

DRUGS (1)
  1. DEPO-PROVERA [Suspect]
     Active Substance: MEDROXYPROGESTERONE ACETATE
     Dosage: UNK
     Dates: start: 20230302

REACTIONS (3)
  - Blood pressure diastolic decreased [Unknown]
  - Pain [Unknown]
  - Arthralgia [Unknown]
